FAERS Safety Report 6578734-2 (Version None)
Quarter: 2010Q1

REPORT INFORMATION
  Report Type: 
  Country: None (occurrence: None)
  Receive Date: 20100211
  Receipt Date: 20100202
  Transmission Date: 20100710
  Serious: Yes (Hospitalization)
  Sender: FDA-Public Use
  Company Number: JP-JNJFOC-20100104702

PATIENT
  Sex: Female
  Weight: 69 kg

DRUGS (19)
  1. GOLIMUMAB [Suspect]
     Indication: RHEUMATOID ARTHRITIS
     Route: 058
  2. GOLIMUMAB [Suspect]
     Route: 058
  3. GOLIMUMAB [Suspect]
     Route: 058
  4. GOLIMUMAB [Suspect]
     Route: 058
  5. GOLIMUMAB [Suspect]
     Route: 058
  6. GOLIMUMAB [Suspect]
     Route: 058
  7. GOLIMUMAB [Suspect]
     Route: 058
  8. GOLIMUMAB [Suspect]
     Route: 058
  9. GOLIMUMAB [Suspect]
     Route: 058
  10. GOLIMUMAB [Suspect]
     Route: 058
  11. GOLIMUMAB [Suspect]
     Route: 058
  12. PLACEBO [Suspect]
     Indication: RHEUMATOID ARTHRITIS
     Route: 058
  13. BETAMETHASONE [Concomitant]
     Indication: RHEUMATOID ARTHRITIS
  14. MOBIC [Concomitant]
     Indication: RHEUMATOID ARTHRITIS
  15. MUCOSTA [Concomitant]
     Indication: PROPHYLAXIS
  16. PLATIBIT [Concomitant]
     Indication: OSTEOPOROSIS
  17. EPEL [Concomitant]
     Indication: RHEUMATOID ARTHRITIS
  18. MS REISHIPPU [Concomitant]
     Indication: RHEUMATOID ARTHRITIS
     Route: 062
  19. HYALEIN [Concomitant]
     Indication: CATARACT

REACTIONS (1)
  - HERPES ZOSTER [None]
